FAERS Safety Report 6099550-4 (Version None)
Quarter: 2009Q1

REPORT INFORMATION
  Report Type: 
  Country: None (occurrence: None)
  Receive Date: 20090303
  Receipt Date: 20090223
  Transmission Date: 20090719
  Serious: Yes (Other)
  Sender: FDA-Public Use
  Company Number: US-BAYER-200712894BWH

PATIENT
  Age: 59 Year
  Sex: Male
  Weight: 119 kg

DRUGS (3)
  1. NEXAVAR [Suspect]
     Indication: RENAL CELL CARCINOMA
     Dosage: TOTAL DAILY DOSE: 800 MG  UNIT DOSE: 200 MG
     Route: 048
     Dates: start: 20070601
  2. NADOLOL [Concomitant]
     Indication: MIGRAINE
     Dates: start: 20000101
  3. PRILOSEC [Concomitant]
     Dates: start: 20020101

REACTIONS (12)
  - ALOPECIA [None]
  - ARTHRALGIA [None]
  - COLITIS [None]
  - DIARRHOEA [None]
  - FATIGUE [None]
  - HAEMATOCHEZIA [None]
  - MUSCULOSKELETAL PAIN [None]
  - PAIN IN EXTREMITY [None]
  - RASH [None]
  - SKIN IRRITATION [None]
  - SKIN LESION [None]
  - SQUAMOUS CELL CARCINOMA OF SKIN [None]
